FAERS Safety Report 6818312-0 (Version None)
Quarter: 2010Q3

REPORT INFORMATION
  Report Type: 
  Country: None (occurrence: None)
  Receive Date: 20100706
  Receipt Date: 20071010
  Transmission Date: 20110219
  Serious: Yes (Hospitalization)
  Sender: FDA-Public Use
  Company Number: US-PFIZER INC-2007049263

PATIENT
  Sex: Female

DRUGS (3)
  1. ZITHROMAX [Suspect]
     Indication: PNEUMONIA
     Dosage: 2 TABLETS
     Route: 048
     Dates: start: 20010111, end: 20010111
  2. ZITHROMAX [Suspect]
     Dosage: 1 TABLET
     Route: 048
     Dates: start: 20010112, end: 20010112
  3. ROCEPHIN [Concomitant]
     Route: 030
     Dates: start: 20010111

REACTIONS (1)
  - TOXIC EPIDERMAL NECROLYSIS [None]
